FAERS Safety Report 6947990-0 (Version None)
Quarter: 2010Q3

REPORT INFORMATION
  Report Type: 
  Country: None (occurrence: None)
  Receive Date: 20100825
  Receipt Date: 20100809
  Transmission Date: 20110219
  Serious: Yes (Other)
  Sender: FDA-Public Use
  Company Number: ACO_01748_2010

PATIENT
  Sex: Female

DRUGS (2)
  1. AMPYRA [Suspect]
     Indication: PRODUCT USED FOR UNKNOWN INDICATION
     Dosage: DF
     Dates: start: 20100313, end: 20100613
  2. TYSABRI [Concomitant]

REACTIONS (5)
  - CONDITION AGGRAVATED [None]
  - DYSPNOEA [None]
  - MULTIPLE SCLEROSIS [None]
  - OROPHARYNGEAL PAIN [None]
  - PHARYNGEAL OEDEMA [None]
